FAERS Safety Report 8694554 (Version 2)
Quarter: 2013Q4

REPORT INFORMATION
  Report Type: Spontaneous
  Country: BR (occurrence: BR)
  Receive Date: 20120731
  Receipt Date: 20131031
  Transmission Date: 20140711
  Serious: Yes (Other)
  Sender: FDA-Public Use
  Company Number: BR-009507513-1205BRA00081

PATIENT
  Age: 50 Year
  Sex: Female
  Weight: 79 kg

DRUGS (5)
  1. JANUMET [Suspect]
     Indication: DIABETES MELLITUS
     Dosage: UNK
     Route: 048
     Dates: start: 201109
  2. JANUMET [Suspect]
     Dosage: UNK
  3. AMARYL [Concomitant]
     Indication: DIABETES MELLITUS
     Dosage: UNK
     Dates: start: 2010
  4. PURAN T4 [Concomitant]
     Indication: THYROID DISORDER
     Dosage: UNK
     Dates: start: 2007
  5. LOSARTAN POTASSIUM TABLETS [Suspect]
     Indication: HYPERTENSION
     Dosage: UNK
     Dates: start: 2010

REACTIONS (5)
  - Splenomegaly [Unknown]
  - Platelet count decreased [Unknown]
  - Abdominal pain upper [Not Recovered/Not Resolved]
  - Lymphoma [Not Recovered/Not Resolved]
  - Diabetes mellitus inadequate control [Not Recovered/Not Resolved]
